FAERS Safety Report 8092071-9 (Version None)
Quarter: 2012Q1

REPORT INFORMATION
  Report Type: 
  Country: None (occurrence: None)
  Receive Date: 20120129
  Receipt Date: 20111215
  Transmission Date: 20120608
  Serious: No
  Sender: FDA-Public Use
  Company Number: US-ABBOTT-11P-163-0872976-00

PATIENT
  Age: 13 Year
  Sex: Male

DRUGS (6)
  1. ASACOL [Concomitant]
     Indication: CROHN'S DISEASE
     Dosage: 6 PILLS DAILY
     Route: 048
     Dates: start: 20070101
  2. HUMIRA [Suspect]
     Indication: CROHN'S DISEASE
     Dosage: LOADING DOSE (4, 20MG PFS)
     Dates: start: 20111103
  3. OMEPRAZOLE [Concomitant]
     Indication: GASTROOESOPHAGEAL REFLUX DISEASE
     Dosage: DAILY
     Route: 048
     Dates: start: 20060101
  4. HUMIRA [Suspect]
  5. METHYLPREDNISOLONE [Concomitant]
     Indication: PRODUCT USED FOR UNKNOWN INDICATION
  6. LEVOTHYROXINE SODIUM [Concomitant]
     Indication: HYPOTHYROIDISM
     Dosage: DAILY
     Route: 048
     Dates: start: 20060101

REACTIONS (3)
  - CROHN'S DISEASE [None]
  - MALAISE [None]
  - NERVOUSNESS [None]
